FAERS Safety Report 6457615-9 (Version None)
Quarter: 2009Q4

REPORT INFORMATION
  Report Type: 
  Country: None (occurrence: None)
  Receive Date: 20091125
  Receipt Date: 20091118
  Transmission Date: 20100525
  Serious: Yes (Death, Hospitalization, Other)
  Sender: FDA-Public Use
  Company Number: US-TYCO HEALTHCARE/MALLINCKRODT-T200701519

PATIENT

DRUGS (32)
  1. OPTIMARK [Suspect]
     Indication: NUCLEAR MAGNETIC RESONANCE IMAGING
     Dosage: 20 ML, SINGLE
     Route: 042
     Dates: start: 20070124, end: 20070124
  2. MAGNEVIST [Suspect]
     Indication: NUCLEAR MAGNETIC RESONANCE IMAGING
     Dosage: 15 ML, SINGLE
     Dates: start: 20040830, end: 20040830
  3. MAGNEVIST [Suspect]
     Dosage: 10 ML, SINGLE
     Dates: start: 20050630, end: 20050630
  4. MAGNEVIST [Suspect]
     Dosage: 20 ML, SINGLE
     Dates: start: 20061026, end: 20061026
  5. MAGNEVIST [Suspect]
     Dosage: 20 ML, SINGLE
     Dates: start: 20061107, end: 20061107
  6. MULTIHANCE [Suspect]
     Indication: NUCLEAR MAGNETIC RESONANCE IMAGING
     Dosage: UNK, UNK
     Dates: start: 20070316, end: 20070316
  7. ALOPURINOL                         /00003301/ [Concomitant]
     Indication: BLOOD URIC ACID INCREASED
     Dosage: 50 MG, QD
  8. ALOPURINOL                         /00003301/ [Concomitant]
     Dosage: 100 MG, QD
  9. ALOPURINOL                         /00003301/ [Concomitant]
  10. ASPIRIN [Concomitant]
     Dosage: UNK, UNK
  11. FUROSEMIDE [Concomitant]
     Dosage: UNK, UNK
  12. CLONIDINE [Concomitant]
     Dosage: .3 MG, AFTERNOON AND BEDTIME
  13. COREG [Concomitant]
     Dosage: 25 MG, BID, SUPPER
  14. HYDRALAZINE HCL [Concomitant]
     Dosage: 50 MG, 3 A DAY-AFTERNOON AND BEDTIME
  15. ZOLOFT [Concomitant]
     Indication: DEPRESSION
     Dosage: 50 MG, QD
  16. RENAGEL                            /01459901/ [Concomitant]
     Indication: PHOSPHORUS METABOLISM DISORDER
     Dosage: 800 MG, 3 EA WITH MEALS, 2 EA WITH SNACKS
  17. RENAGEL                            /01459901/ [Concomitant]
     Dosage: VARIOUS DEPENDING ON COUNT EVERY MONTH
  18. LIPITOR [Concomitant]
     Indication: BLOOD CHOLESTEROL INCREASED
     Dosage: 20 MG, QD
     Dates: start: 20040101, end: 20080101
  19. VITAMIN B12                        /00056201/ [Concomitant]
     Dosage: UNK, QD
  20. INSULIN [Concomitant]
     Dosage: 30 UNITS AT 8 AM AND 26 UNITS AT ABOUT 6-7 PM
     Dates: start: 19780101, end: 20080101
  21. IMDUR [Concomitant]
     Indication: VASODILATATION
     Dosage: 60 MG, QD
     Dates: start: 20050101, end: 20080101
  22. SENSIPAR [Concomitant]
     Indication: BLOOD CALCIUM
     Dosage: 30 MG, 5X/WEEK
  23. PROTONIX                           /01263201/ [Concomitant]
     Indication: GASTROOESOPHAGEAL REFLUX DISEASE
  24. NOVOLIN R [Concomitant]
     Indication: BLOOD INSULIN
     Dosage: UNK, PRN
  25. COUMADIN [Concomitant]
     Indication: ANTICOAGULANT THERAPY
     Dosage: 2.5 MG, ON SUNDAYS
     Dates: start: 20040101, end: 20050101
  26. COUMADIN [Concomitant]
     Dosage: 5 MG, EVERY DAY BUT SUNDAY
     Dates: start: 20040101, end: 20050101
  27. MIDODRINE HYDROCHLORIDE [Concomitant]
     Indication: HYPERTENSION
     Dosage: 10 MG, 3X/WEEK BEFORE DIALYSIS
  28. MOBIC [Concomitant]
     Indication: ARTHRALGIA
     Dosage: 7.5 MG, PRN
  29. GABAPENTIN [Concomitant]
     Indication: EPILEPSY
     Dosage: 100 MG, QD
  30. TYLENOL (CAPLET) [Concomitant]
     Indication: PAIN
     Dosage: UNK, PRN
  31. EPOGEN [Concomitant]
     Indication: DIALYSIS
     Dosage: UNK, UNK
     Dates: start: 20040101, end: 20080101
  32. AMIODARONE HCL [Concomitant]
     Indication: HEART RATE IRREGULAR
     Dosage: 100 MG, QD

REACTIONS (23)
  - ANAEMIA [None]
  - ANXIETY [None]
  - CELLULITIS [None]
  - CHEST PAIN [None]
  - COUGH [None]
  - GANGRENE [None]
  - GOUT [None]
  - HAEMORRHAGE INTRACRANIAL [None]
  - HYPERLIPIDAEMIA [None]
  - HYPERPARATHYROIDISM SECONDARY [None]
  - IMPAIRED HEALING [None]
  - MENTAL STATUS CHANGES [None]
  - NEPHROGENIC SYSTEMIC FIBROSIS [None]
  - OSTEOMYELITIS [None]
  - PAIN IN EXTREMITY [None]
  - PERIPHERAL ARTERIAL OCCLUSIVE DISEASE [None]
  - PLEURAL EFFUSION [None]
  - PNEUMONIA [None]
  - PULMONARY HYPERTENSION [None]
  - SINUS ARRHYTHMIA [None]
  - SLEEP DISORDER [None]
  - STAPHYLOCOCCAL INFECTION [None]
  - TREMOR [None]
